FAERS Safety Report 16947986 (Version 1)
Quarter: 2019Q4

REPORT INFORMATION
  Report Type: Spontaneous
  Country: US (occurrence: US)
  Receive Date: 20191022
  Receipt Date: 20191022
  Transmission Date: 20200122
  Serious: No
  Sender: FDA-Public Use
  Company Number: US-ROCHE-2317097

PATIENT
  Age: 81 Year
  Sex: Male
  Weight: 80.81 kg

DRUGS (2)
  1. ESBRIET [Suspect]
     Active Substance: PIRFENIDONE
     Indication: PULMONARY FIBROSIS
     Dosage: 2 OF 267 MG TABLETS
     Route: 048
     Dates: start: 20180527
  2. NITROGLYCERIN. [Concomitant]
     Active Substance: NITROGLYCERIN
     Indication: VASCULAR GRAFT
     Dosage: 0.04 MG SPRAY, ONGOING: UNKNOWN
     Route: 055

REACTIONS (2)
  - Rash [Not Recovered/Not Resolved]
  - Rash pruritic [Not Recovered/Not Resolved]

NARRATIVE: CASE EVENT DATE: 20190504
